FAERS Safety Report 4632049-8 (Version None)
Quarter: 2005Q2

REPORT INFORMATION
  Report Type: 
  Country: None (occurrence: None)
  Receive Date: 20050411
  Receipt Date: 20050301
  Transmission Date: 20051028
  Serious: Yes (Other)
  Sender: FDA-Public Use
  Company Number: US-BRISTOL-MYERS SQUIBB COMPANY-12881066

PATIENT
  Age: 16 Year
  Sex: Female
  Weight: 46 kg

DRUGS (1)
  1. ABILIFY [Suspect]
     Dosage: DEC-04, 5 MG; DOSAGE INCREASED SLOWLY TO 15 MG WHICH CONTINUES
     Dates: start: 20041201

REACTIONS (2)
  - ABORTION INDUCED [None]
  - PREGNANCY [None]
